FAERS Safety Report 4309370-6 (Version None)
Quarter: 2004Q1

REPORT INFORMATION
  Report Type: 
  Country: None (occurrence: None)
  Receive Date: 20040302
  Receipt Date: 20040223
  Transmission Date: 20041129
  Serious: Yes (Hospitalization)
  Sender: FDA-Public Use
  Company Number: US-BRISTOL-MYERS SQUIBB COMPANY-12515318

PATIENT
  Age: 74 Year
  Sex: Male

DRUGS (3)
  1. GLUCOPHAGE [Suspect]
     Dates: end: 20040101
  2. AVANDIA [Suspect]
     Dates: end: 20040101
  3. OCUVITE [Suspect]

REACTIONS (1)
  - PULMONARY CONGESTION [None]
